FAERS Safety Report 6213834-8 (Version None)
Quarter: 2009Q2

REPORT INFORMATION
  Report Type: 
  Country: None (occurrence: None)
  Receive Date: 20090604
  Receipt Date: 20090527
  Transmission Date: 20091009
  Serious: Yes (Other)
  Sender: FDA-Public Use
  Company Number: US-ASTRAZENECA-2009UW13494

PATIENT
  Age: 67 Year
  Sex: Female
  Weight: 84.4 kg

DRUGS (3)
  1. CRESTOR [Suspect]
     Route: 048
  2. PREDNISONE [Concomitant]
  3. LEVAQUIN [Concomitant]

REACTIONS (3)
  - ABASIA [None]
  - RHEUMATOID ARTHRITIS [None]
  - URTICARIA [None]
